FAERS Safety Report 21322536 (Version 1)
Quarter: 2022Q3

REPORT INFORMATION
  Report Type: Spontaneous
  Country: PR (occurrence: PR)
  Receive Date: 20220912
  Receipt Date: 20220912
  Transmission Date: 20221027
  Serious: No
  Sender: FDA-Public Use
  Company Number: PR-BRISTOL-MYERS SQUIBB COMPANY-2022-104156

PATIENT
  Age: 71 Year
  Sex: Male
  Weight: 83.91 kg

DRUGS (1)
  1. REVLIMID [Suspect]
     Active Substance: LENALIDOMIDE
     Indication: Plasma cell myeloma
     Dosage: FREQUENCY : DAILY FOR 28 DAYS.
     Route: 048
     Dates: start: 20200602

REACTIONS (2)
  - Platelet count decreased [Not Recovered/Not Resolved]
  - White blood cell count decreased [Not Recovered/Not Resolved]

NARRATIVE: CASE EVENT DATE: 20220907
